FAERS Safety Report 12183566 (Version 1)
Quarter: 2016Q1

REPORT INFORMATION
  Report Type: Spontaneous
  Country: US (occurrence: None)
  Receive Date: 20160315
  Receipt Date: 20160315
  Transmission Date: 20160526
  Serious: Yes (Disabling)
  Sender: FDA-Public Use
  Company Number: None

PATIENT
  Age: 68 Year
  Sex: Female
  Weight: 95.71 kg

DRUGS (18)
  1. AQUAPHOUR [Concomitant]
  2. SYNTHROID [Concomitant]
     Active Substance: LEVOTHYROXINE SODIUM
  3. ZYRTEC [Concomitant]
     Active Substance: CETIRIZINE HYDROCHLORIDE
  4. CRANBERRY EXTRACT [Concomitant]
     Active Substance: CRANBERRY JUICE
  5. ASPIRIN. [Concomitant]
     Active Substance: ASPIRIN
  6. ACID REFLUX MEDICINE [Concomitant]
  7. PROTON PUMP INHIBITOR [Concomitant]
     Active Substance: UNSPECIFIED INGREDIENT
  8. HEMMOIRD MED W/STEROID [Concomitant]
  9. ESTRACE [Concomitant]
     Active Substance: ESTRADIOL
  10. VITAMIN B12 [Concomitant]
     Active Substance: CYANOCOBALAMIN
  11. VITAMIN C [Concomitant]
     Active Substance: ASCORBIC ACID
  12. PREMARIN [Suspect]
     Active Substance: ESTROGENS, CONJUGATED
     Indication: VULVOVAGINAL DRYNESS
  13. PRIMADONE [Concomitant]
  14. OCUVRITE [Concomitant]
  15. FLONASE [Concomitant]
     Active Substance: FLUTICASONE PROPIONATE
  16. SINGULAIR [Concomitant]
     Active Substance: MONTELUKAST SODIUM
  17. CLONAZPAM [Concomitant]
  18. PROPANANOL [Concomitant]

REACTIONS (1)
  - Thrombophlebitis [None]

NARRATIVE: CASE EVENT DATE: 2002
